FAERS Safety Report 5773925-2 (Version None)
Quarter: 2008Q2

REPORT INFORMATION
  Report Type: 
  Country: None (occurrence: None)
  Receive Date: 20080616
  Receipt Date: 20080612
  Transmission Date: 20081010
  Serious: Yes (Other)
  Sender: FDA-Public Use
  Company Number: B0524654A

PATIENT
  Sex: Male

DRUGS (1)
  1. PAXIL [Suspect]
     Route: 048

REACTIONS (5)
  - CHILLS [None]
  - CONVULSION [None]
  - DRUG WITHDRAWAL SYNDROME [None]
  - MYALGIA [None]
  - TREMOR [None]
